FAERS Safety Report 8221733-5 (Version None)
Quarter: 2012Q1

REPORT INFORMATION
  Report Type: 
  Country: None (occurrence: None)
  Receive Date: 20120320
  Receipt Date: 20120305
  Transmission Date: 20120608
  Serious: Yes (Other)
  Sender: FDA-Public Use
  Company Number: TW-WATSON-2012-04310

PATIENT
  Age: 37 Year
  Sex: Female

DRUGS (2)
  1. METHYLPREDNISOLONE [Suspect]
     Indication: LICHEN MYXOEDEMATOSUS
  2. PREDNISONE TAB [Suspect]
     Indication: LICHEN MYXOEDEMATOSUS
     Dosage: 20 MG, DAILY
     Route: 065

REACTIONS (8)
  - FATIGUE [None]
  - MUSCULAR WEAKNESS [None]
  - ABDOMINAL DISTENSION [None]
  - DEPRESSION [None]
  - INSOMNIA [None]
  - TACHYCARDIA [None]
  - ADIPOSIS DOLOROSA [None]
  - IRRITABILITY [None]
